FAERS Safety Report 11186975 (Version 21)
Quarter: 2022Q1

REPORT INFORMATION
  Report Type: Other
  Country: CA (occurrence: CA)
  Receive Date: 20150615
  Receipt Date: 20220222
  Transmission Date: 20220423
  Serious: Yes (Hospitalization, Other)
  Sender: FDA-Public Use
  Company Number: CA-ROCHE-1592614

PATIENT
  Age: 62 Year
  Sex: Female

DRUGS (26)
  1. XOLAIR [Suspect]
     Active Substance: OMALIZUMAB
     Indication: Asthma
     Route: 058
     Dates: start: 20131118
  2. XOLAIR [Suspect]
     Active Substance: OMALIZUMAB
     Dosage: UNK
     Route: 058
     Dates: start: 20131213
  3. XOLAIR [Suspect]
     Active Substance: OMALIZUMAB
     Dosage: UNK
     Route: 058
     Dates: start: 20150112
  4. XOLAIR [Suspect]
     Active Substance: OMALIZUMAB
     Dosage: UNK
     Route: 058
     Dates: start: 20150209
  5. XOLAIR [Suspect]
     Active Substance: OMALIZUMAB
     Dosage: UNK
     Route: 058
     Dates: start: 20150309
  6. XOLAIR [Suspect]
     Active Substance: OMALIZUMAB
     Dosage: UNK
     Route: 058
     Dates: start: 20160307
  7. XOLAIR [Suspect]
     Active Substance: OMALIZUMAB
     Dosage: UNK
     Route: 058
     Dates: start: 20160404
  8. XOLAIR [Suspect]
     Active Substance: OMALIZUMAB
     Dosage: UNK
     Route: 058
     Dates: start: 20160822
  9. XOLAIR [Suspect]
     Active Substance: OMALIZUMAB
     Dosage: UNK
     Route: 058
     Dates: start: 20160919
  10. XOLAIR [Suspect]
     Active Substance: OMALIZUMAB
     Route: 058
     Dates: start: 20161209
  11. XOLAIR [Suspect]
     Active Substance: OMALIZUMAB
     Dosage: UNK
     Route: 058
     Dates: start: 20170109
  12. XOLAIR [Suspect]
     Active Substance: OMALIZUMAB
     Dosage: UNK
     Route: 058
     Dates: start: 20170206
  13. XOLAIR [Suspect]
     Active Substance: OMALIZUMAB
     Dosage: UNK
     Route: 058
     Dates: start: 20170306
  14. XOLAIR [Suspect]
     Active Substance: OMALIZUMAB
     Dosage: UNK
     Route: 058
     Dates: start: 20170501
  15. XOLAIR [Suspect]
     Active Substance: OMALIZUMAB
     Route: 058
     Dates: start: 20170626
  16. XOLAIR [Suspect]
     Active Substance: OMALIZUMAB
     Route: 058
     Dates: start: 20170724
  17. XOLAIR [Suspect]
     Active Substance: OMALIZUMAB
     Route: 058
     Dates: start: 20170918
  18. XOLAIR [Suspect]
     Active Substance: OMALIZUMAB
     Route: 058
     Dates: start: 20171016
  19. XOLAIR [Suspect]
     Active Substance: OMALIZUMAB
     Route: 058
     Dates: start: 20180212
  20. XOLAIR [Suspect]
     Active Substance: OMALIZUMAB
     Route: 058
     Dates: start: 20180312
  21. XOLAIR [Suspect]
     Active Substance: OMALIZUMAB
     Route: 058
     Dates: start: 20180409
  22. XOLAIR [Suspect]
     Active Substance: OMALIZUMAB
     Route: 058
     Dates: start: 20180507
  23. XOLAIR [Suspect]
     Active Substance: OMALIZUMAB
     Route: 058
     Dates: start: 20190617
  24. XOLAIR [Suspect]
     Active Substance: OMALIZUMAB
     Route: 058
     Dates: start: 20190617
  25. XOLAIR [Suspect]
     Active Substance: OMALIZUMAB
     Dosage: 23/DEC/2021
     Route: 058
  26. BENADRYL [Suspect]
     Active Substance: DIPHENHYDRAMINE HYDROCHLORIDE
     Indication: Product used for unknown indication
     Route: 065

REACTIONS (42)
  - Bronchitis [Recovering/Resolving]
  - Blood pressure increased [Recovering/Resolving]
  - Nasal congestion [Unknown]
  - Productive cough [Unknown]
  - Dysphonia [Unknown]
  - Back pain [Unknown]
  - Influenza [Recovered/Resolved]
  - Body temperature decreased [Recovering/Resolving]
  - Chest discomfort [Unknown]
  - Seasonal allergy [Unknown]
  - Concomitant disease aggravated [Unknown]
  - Lacrimation increased [Unknown]
  - Sense of oppression [Unknown]
  - Asthma [Unknown]
  - Respiratory rate increased [Unknown]
  - Heart rate increased [Unknown]
  - Breath sounds abnormal [Unknown]
  - Bronchospasm [Recovering/Resolving]
  - Pruritus [Unknown]
  - Oxygen saturation decreased [Unknown]
  - Gastrointestinal disorder [Unknown]
  - Lip swelling [Unknown]
  - Food allergy [Unknown]
  - Abdominal discomfort [Unknown]
  - Blister [Unknown]
  - Oral herpes [Unknown]
  - Sneezing [Recovering/Resolving]
  - Lagophthalmos [Recovering/Resolving]
  - Oropharyngeal pain [Unknown]
  - Hypersensitivity [Recovering/Resolving]
  - Nasopharyngitis [Unknown]
  - Sinusitis [Unknown]
  - Back disorder [Unknown]
  - Dyspnoea [Recovering/Resolving]
  - Fatigue [Unknown]
  - Myalgia [Unknown]
  - Diarrhoea [Unknown]
  - Pneumonia [Recovered/Resolved]
  - Cellulitis [Recovered/Resolved]
  - Drug hypersensitivity [Unknown]
  - Wrong technique in product usage process [Unknown]
  - Incorrect dose administered [Unknown]

NARRATIVE: CASE EVENT DATE: 20131118
